FAERS Safety Report 14296966 (Version 1)
Quarter: 2017Q4

REPORT INFORMATION
  Report Type: Spontaneous
  Country: US (occurrence: US)
  Receive Date: 20171218
  Receipt Date: 20171218
  Transmission Date: 20180321
  Serious: Yes (Life-Threatening, Other)
  Sender: FDA-Public Use
  Company Number: US-NAPPMUNDI-USA-2017-0141965

PATIENT

DRUGS (2)
  1. HYDROCODONE BITARTRATE (SIMILAR TO NDA 206627) [Suspect]
     Active Substance: HYDROCODONE BITARTRATE
     Indication: PAIN
     Dosage: 10 MG, Q4H
     Route: 048
  2. OXYCONTIN [Suspect]
     Active Substance: OXYCODONE HYDROCHLORIDE
     Indication: PAIN
     Dosage: 80 MG, TID
     Route: 048

REACTIONS (7)
  - Off label use [Unknown]
  - Insomnia [Unknown]
  - Pulmonary embolism [Unknown]
  - Herpes zoster [Unknown]
  - Pain [Unknown]
  - Life support [Unknown]
  - Sepsis [Unknown]
